FAERS Safety Report 9976899 (Version 1)
Quarter: 2014Q1

REPORT INFORMATION
  Report Type: Report from Study
  Country: US (occurrence: US)
  Receive Date: 20140306
  Receipt Date: 20140306
  Transmission Date: 20141002
  Serious: Yes (Hospitalization)
  Sender: FDA-Public Use
  Company Number: US-ABBVIE-13P-163-1167760-00

PATIENT
  Age: 60 Year
  Sex: Male
  Weight: 74.46 kg

DRUGS (3)
  1. HUMIRA [Suspect]
     Indication: COLITIS ULCERATIVE
     Dates: start: 20130910, end: 20130910
  2. HUMIRA [Suspect]
     Dates: end: 20131023
  3. LOMOTIL [Concomitant]
     Indication: DIARRHOEA

REACTIONS (3)
  - Hospitalisation [Unknown]
  - Drug dose omission [Unknown]
  - Malaise [Unknown]
